FAERS Safety Report 10487639 (Version 1)
Quarter: 2014Q4

REPORT INFORMATION
  Report Type: Spontaneous
  Country: US (occurrence: US)
  Receive Date: 20141001
  Receipt Date: 20141001
  Transmission Date: 20150528
  Serious: Yes (Other)
  Sender: FDA-Public Use
  Company Number: US-ASTRAZENECA-2014SE72559

PATIENT
  Sex: Female
  Weight: 64.9 kg

DRUGS (1)
  1. SYMBICORT [Suspect]
     Active Substance: BUDESONIDE\FORMOTEROL FUMARATE DIHYDRATE
     Indication: ASTHMA
     Dosage: UNKNOWN DOSE TWO TIMES A DAY
     Route: 055
     Dates: start: 2011

REACTIONS (2)
  - Fall [Unknown]
  - Intentional product misuse [Unknown]
